FAERS Safety Report 8171777-7 (Version None)
Quarter: 2012Q1

REPORT INFORMATION
  Report Type: 
  Country: None (occurrence: None)
  Receive Date: 20120228
  Receipt Date: 20120223
  Transmission Date: 20120608
  Serious: Yes (Hospitalization)
  Sender: FDA-Public Use
  Company Number: US-GLAXOSMITHKLINE-A0967178A

PATIENT
  Age: 62 Year
  Sex: Female

DRUGS (2)
  1. NO CONCURRENT MEDICATION [Concomitant]
  2. LAMICTAL [Suspect]
     Indication: EPILEPSY
     Dosage: 200MG PER DAY
     Route: 048

REACTIONS (8)
  - TOXICITY TO VARIOUS AGENTS [None]
  - IRRITABILITY [None]
  - GAIT DISTURBANCE [None]
  - THYROTOXIC CRISIS [None]
  - HYPERREFLEXIA [None]
  - CLONUS [None]
  - ASTHENIA [None]
  - THYROID FUNCTION TEST ABNORMAL [None]
